FAERS Safety Report 6679909-4 (Version None)
Quarter: 2010Q2

REPORT INFORMATION
  Report Type: 
  Country: None (occurrence: None)
  Receive Date: 20100413
  Receipt Date: 20100330
  Transmission Date: 20101027
  Serious: Yes (Death, Hospitalization, Disabling, Other)
  Sender: FDA-Public Use
  Company Number: US-ELI_LILLY_AND_COMPANY-US201004000089

PATIENT
  Sex: Male

DRUGS (7)
  1. FORTEO [Suspect]
     Indication: OSTEOPOROSIS
     Dosage: 20 UG, DAILY (1/D)
     Dates: start: 20090401, end: 20090901
  2. FORTEO [Suspect]
     Dates: start: 20090101
  3. COREG [Concomitant]
  4. ALDACTONE [Concomitant]
  5. BUDAMAX [Concomitant]
     Indication: FLUID RETENTION
  6. OXYCODONE [Concomitant]
  7. COUMADIN [Concomitant]

REACTIONS (11)
  - BLOOD CREATININE INCREASED [None]
  - CARDIAC FAILURE CONGESTIVE [None]
  - DYSPNOEA [None]
  - ERYTHEMA [None]
  - FALL [None]
  - KIDNEY INFECTION [None]
  - NEUROPATHY PERIPHERAL [None]
  - OEDEMA PERIPHERAL [None]
  - PNEUMONIA [None]
  - TIBIA FRACTURE [None]
  - VENOUS INSUFFICIENCY [None]
